FAERS Safety Report 26199047 (Version 1)
Quarter: 2025Q4

REPORT INFORMATION
  Report Type: Spontaneous
  Country: EU (occurrence: EU)
  Receive Date: 20251225
  Receipt Date: 20251225
  Transmission Date: 20260118
  Serious: Yes (Disabling)
  Sender: ROCHE
  Company Number: EU-002147023-NVSC2025ES190289

PATIENT
  Age: 51 Year
  Sex: Female

DRUGS (6)
  1. OMALIZUMAB [Suspect]
     Active Substance: OMALIZUMAB
     Indication: Chronic spontaneous urticaria
     Dates: start: 201809
  2. CYCLOSPORINE [Suspect]
     Active Substance: CYCLOSPORINE
     Indication: Chronic spontaneous urticaria
     Dates: start: 202405, end: 20240725
  3. EBASTINE [Concomitant]
     Active Substance: EBASTINE
     Indication: Chronic spontaneous urticaria
     Dosage: UNK (X4)
  4. DUPILUMAB [Concomitant]
     Active Substance: DUPILUMAB
     Indication: Chronic spontaneous urticaria
     Dosage: UNK
     Dates: start: 20250522, end: 20250704
  5. BRINTELLIX [Concomitant]
     Active Substance: VORTIOXETINE HYDROBROMIDE
     Indication: Depression
     Dosage: 20 MG, QD
  6. Oniria [Concomitant]
     Indication: Depression
     Dosage: 1 DOSAGE FORM, QD

REACTIONS (5)
  - Hypotension [Unknown]
  - Myalgia [Unknown]
  - Asthenia [Unknown]
  - Nausea [Unknown]
  - Chronic spontaneous urticaria [Unknown]
